FAERS Safety Report 13853813 (Version 1)
Quarter: 2017Q3

REPORT INFORMATION
  Report Type: Spontaneous
  Country: US (occurrence: US)
  Receive Date: 20170810
  Receipt Date: 20170810
  Transmission Date: 20171127
  Serious: Yes (Hospitalization)
  Sender: FDA-Public Use
  Company Number: None

PATIENT
  Age: 79 Year
  Sex: Female

DRUGS (12)
  1. MAGNESIUM [Concomitant]
     Active Substance: MAGNESIUM
  2. VITAMIN B12 [Concomitant]
     Active Substance: CYANOCOBALAMIN
  3. PIOGLITAZONE. [Concomitant]
     Active Substance: PIOGLITAZONE
  4. LYRICA [Concomitant]
     Active Substance: PREGABALIN
  5. ZETIA [Concomitant]
     Active Substance: EZETIMIBE
  6. DIAZEPAM. [Concomitant]
     Active Substance: DIAZEPAM
  7. REPATHA [Suspect]
     Active Substance: EVOLOCUMAB
     Indication: HYPERLIPIDAEMIA
     Route: 058
     Dates: start: 20160218
  8. ESZOPICLONE. [Concomitant]
     Active Substance: ESZOPICLONE
  9. VITAMIN D3 [Concomitant]
     Active Substance: CHOLECALCIFEROL
  10. CELECOXIB. [Concomitant]
     Active Substance: CELECOXIB
  11. TRULICITY [Concomitant]
     Active Substance: DULAGLUTIDE
  12. MYRBETRIQ [Concomitant]
     Active Substance: MIRABEGRON

REACTIONS (2)
  - Spinal operation [None]
  - Drug dose omission [None]
